FAERS Safety Report 18940851 (Version 1)
Quarter: 2021Q1

REPORT INFORMATION
  Report Type: Spontaneous
  Country: US (occurrence: US)
  Receive Date: 20210225
  Receipt Date: 20210225
  Transmission Date: 20210420
  Serious: Yes (Death)
  Sender: FDA-Public Use
  Company Number: None

PATIENT
  Age: 77 Year
  Sex: Female
  Weight: 71.1 kg

DRUGS (1)
  1. KISQALI [Suspect]
     Active Substance: RIBOCICLIB
     Indication: BREAST CANCER
     Dosage: ?          OTHER FREQUENCY:400MG DAILY.;?
     Route: 048
     Dates: start: 20200416, end: 20210204

REACTIONS (2)
  - Secondary immunodeficiency [None]
  - COVID-19 [None]

NARRATIVE: CASE EVENT DATE: 20210225
